FAERS Safety Report 19082807 (Version 3)
Quarter: 2022Q2

REPORT INFORMATION
  Report Type: Spontaneous
  Country: PR (occurrence: PR)
  Receive Date: 20210401
  Receipt Date: 20220419
  Transmission Date: 20220720
  Serious: Yes (Other)
  Sender: FDA-Public Use
  Company Number: PR-PFIZER INC-2021338810

PATIENT
  Age: 71 Year
  Sex: Female

DRUGS (5)
  1. XELJANZ XR [Suspect]
     Active Substance: TOFACITINIB CITRATE
     Indication: Rheumatoid arthritis
     Dosage: 11 MG, DAILY
     Route: 048
     Dates: start: 20200811
  2. XELJANZ XR [Suspect]
     Active Substance: TOFACITINIB CITRATE
     Dosage: 11 MG, DAILY (1 TABLET)
     Route: 048
     Dates: start: 20200814
  3. XELJANZ XR [Suspect]
     Active Substance: TOFACITINIB CITRATE
     Dosage: 11 MG, DAILY (PER DAY)
  4. XELJANZ XR [Suspect]
     Active Substance: TOFACITINIB CITRATE
     Dosage: 11 MG
     Dates: start: 20201012
  5. XELJANZ XR [Suspect]
     Active Substance: TOFACITINIB CITRATE
     Dosage: 11 MG, DAILY

REACTIONS (11)
  - Spinal pain [Unknown]
  - Condition aggravated [Unknown]
  - Product dose omission in error [Unknown]
  - Abdominal discomfort [Unknown]
  - Haemoglobin decreased [Unknown]
  - Gastritis [Unknown]
  - Pain [Not Recovered/Not Resolved]
  - Pruritus [Unknown]
  - Reflux gastritis [Unknown]
  - Throat irritation [Unknown]
  - Vision blurred [Not Recovered/Not Resolved]
